APPROVED DRUG PRODUCT: CISPLATIN
Active Ingredient: CISPLATIN
Strength: 1MG/ML
Dosage Form/Route: INJECTABLE;INJECTION
Application: A207323 | Product #001 | TE Code: AP
Applicant: GLAND PHARMA LTD
Approved: Mar 17, 2017 | RLD: No | RS: No | Type: RX